FAERS Safety Report 9780592 (Version 2)
Quarter: 2013Q4

REPORT INFORMATION
  Report Type: Report from Study
  Country: BR (occurrence: BR)
  Receive Date: 20131224
  Receipt Date: 20131227
  Transmission Date: 20140711
  Serious: Yes (Hospitalization)
  Sender: FDA-Public Use
  Company Number: BR-ASTRAZENECA-2013SE92787

PATIENT
  Age: 24145 Day
  Sex: Male

DRUGS (7)
  1. AZD6140 [Suspect]
     Indication: CORONARY ARTERY DISEASE
     Route: 048
     Dates: start: 20120613
  2. ASA [Concomitant]
     Route: 048
  3. ISORDIL [Concomitant]
     Indication: ANGINA PECTORIS
     Route: 060
     Dates: start: 20120817
  4. ENALAPRIL [Concomitant]
     Indication: HYPERTENSION
     Route: 048
  5. HYDROCHLOROTHIAZIDE [Concomitant]
     Indication: HYPERTENSION
     Route: 048
  6. SINVASTATIN [Concomitant]
     Indication: HYPERCHOLESTEROLAEMIA
     Route: 048
  7. METOPROLOL [Concomitant]
     Indication: INFARCTION
     Route: 048

REACTIONS (1)
  - Peritonitis [Recovered/Resolved]
